FAERS Safety Report 20833139 (Version 1)
Quarter: 2022Q2

REPORT INFORMATION
  Report Type: Spontaneous
  Country: ES (occurrence: ES)
  Receive Date: 20220516
  Receipt Date: 20220516
  Transmission Date: 20220721
  Serious: Yes (Other)
  Sender: FDA-Public Use
  Company Number: ES-BioDelivery Sciences International-2022BDSI0190

PATIENT
  Sex: Male

DRUGS (1)
  1. ONSOLIS [Suspect]
     Active Substance: FENTANYL CITRATE
     Indication: Breakthrough pain
     Dosage: IMMEDIATE-RELEASE FENTANYL; UNKNOWN; UNKNOWN
     Route: 065

REACTIONS (8)
  - Apathy [Recovered/Resolved]
  - Weight increased [Recovered/Resolved]
  - Thinking abnormal [Recovered/Resolved]
  - Drug dependence [Unknown]
  - Drug withdrawal syndrome [Recovered/Resolved]
  - Drug abuse [Unknown]
  - Bedridden [Recovered/Resolved]
  - Therapeutic response shortened [Unknown]
